FAERS Safety Report 5086978-4 (Version None)
Quarter: 2006Q3

REPORT INFORMATION
  Report Type: 
  Country: None (occurrence: None)
  Receive Date: 20060821
  Receipt Date: 20060804
  Transmission Date: 20061208
  Serious: Yes (Hospitalization, Other)
  Sender: FDA-Public Use
  Company Number: 2006AL002178

PATIENT
  Age: 74 Year
  Sex: Male

DRUGS (10)
  1. DICLOFENAC SODIUM DELAYED-RELEASE TABLETS, 50 MG (PUREPAC) (DICLOFENAC [Suspect]
     Indication: PERICARDITIS
     Dosage: 50 MG;TID;PO
     Route: 048
     Dates: start: 20060522, end: 20060525
  2. CLOPIDOGREL [Concomitant]
  3. CLEXANE [Concomitant]
  4. SALICYLIC ACID [Concomitant]
  5. BISOPROLOL FUMARATE [Concomitant]
  6. FUROSEMIDE [Concomitant]
  7. METRONIDAZOLE [Concomitant]
  8. OXYTETRACYCLINE [Concomitant]
  9. QVAR 40 [Concomitant]
  10. ALBUTEROL SPIROS [Concomitant]

REACTIONS (6)
  - COLD SWEAT [None]
  - FEELING COLD [None]
  - GASTROINTESTINAL HAEMORRHAGE [None]
  - HAEMOGLOBIN DECREASED [None]
  - HYPOTENSION [None]
  - SYNCOPE [None]
